FAERS Safety Report 6906086-4 (Version None)
Quarter: 2010Q3

REPORT INFORMATION
  Report Type: 
  Country: None (occurrence: None)
  Receive Date: 20100804
  Receipt Date: 20100726
  Transmission Date: 20110219
  Serious: Yes (Hospitalization)
  Sender: FDA-Public Use
  Company Number: JP-ALLERGAN-1007724US

PATIENT
  Age: 15 Year
  Sex: Male

DRUGS (11)
  1. BOTOX INJECTION 100 [Suspect]
     Indication: TORTICOLLIS
     Dosage: 33 UNITS, SINGLE
     Route: 030
     Dates: start: 20081015, end: 20081015
  2. BOTOX INJECTION 100 [Suspect]
     Dosage: 65 UNITS, SINGLE
     Route: 030
     Dates: start: 20090204, end: 20090204
  3. BOTOX INJECTION 100 [Suspect]
     Dosage: 90 UNITS, SINGLE
     Route: 030
     Dates: start: 20090527, end: 20090527
  4. DIAZEPAM [Suspect]
     Indication: TORTICOLLIS
     Dosage: 0.5 MG, QD
     Route: 048
     Dates: start: 20081003
  5. VALPROIC ACID [Concomitant]
     Indication: EPILEPSY
     Dosage: 1.2 G, QD
     Route: 048
     Dates: start: 20081003
  6. MUCODYNE [Concomitant]
     Indication: BRONCHITIS
     Dosage: 1.4 G, QD
     Route: 048
     Dates: start: 20081003
  7. PHENOBARBITAL TAB [Concomitant]
     Indication: EPILEPSY
     Route: 048
     Dates: start: 20081003
  8. DANTRIUM [Concomitant]
     Indication: TORTICOLLIS
     Dosage: 12.5 MG, QD
     Route: 048
     Dates: start: 20081003
  9. GABALON [Concomitant]
     Indication: TORTICOLLIS
     Dosage: 5 MG, QD
     Route: 048
     Dates: start: 20081003
  10. FAMOTIDINE [Concomitant]
     Indication: REFLUX OESOPHAGITIS
     Dosage: 2 DF, QD
     Route: 048
     Dates: start: 20081003
  11. TRICLORYL [Concomitant]
     Indication: INSOMNIA
     Dosage: 6 ML, QD
     Route: 048
     Dates: start: 20081003

REACTIONS (3)
  - BLOOD AMYLASE INCREASED [None]
  - HYPOTHERMIA [None]
  - PANCREATITIS ACUTE [None]
